FAERS Safety Report 6749044-5 (Version None)
Quarter: 2010Q2

REPORT INFORMATION
  Report Type: 
  Country: None (occurrence: None)
  Receive Date: 20100601
  Receipt Date: 20100519
  Transmission Date: 20101027
  Serious: Yes (Hospitalization, Other)
  Sender: FDA-Public Use
  Company Number: GB-BAYER-201025515GPV

PATIENT
  Age: 58 Year
  Sex: Male

DRUGS (6)
  1. CIPROXIN [Suspect]
     Indication: POSTOPERATIVE WOUND INFECTION
     Dosage: UNIT DOSE: 500 MG
     Route: 048
  2. FUSIDIC ACID [Interacting]
     Indication: POSTOPERATIVE WOUND INFECTION
     Dosage: UNIT DOSE: 500 MG
  3. ATORVASTATIN [Interacting]
     Indication: DRUG USE FOR UNKNOWN INDICATION
  4. BISOPROLOL [Concomitant]
     Indication: DRUG USE FOR UNKNOWN INDICATION
     Dosage: UNIT DOSE: 5 MG
  5. FRUSEMIDE [Concomitant]
     Indication: DRUG USE FOR UNKNOWN INDICATION
     Dosage: UNIT DOSE: 20 MG
  6. ASPIRIN [Concomitant]
     Indication: DRUG USE FOR UNKNOWN INDICATION
     Dosage: UNIT DOSE: 75 MG

REACTIONS (1)
  - RHABDOMYOLYSIS [None]
